FAERS Safety Report 8422747-2 (Version None)
Quarter: 2012Q2

REPORT INFORMATION
  Report Type: 
  Country: None (occurrence: None)
  Receive Date: 20120604
  Receipt Date: 20120504
  Transmission Date: 20120825
  Serious: Yes (Other)
  Sender: FDA-Public Use
  Company Number: A12-077

PATIENT
  Sex: Female

DRUGS (7)
  1. LAMB'S QUARTER 1/20 W/V; ALK-ABELLO, INC. [Suspect]
     Indication: IMMUNE TOLERANCE INDUCTION
     Dates: start: 20120502
  2. BAHIA GRASS, 1:20 W/V/10ML; ALK-ABELLO [Suspect]
     Indication: IMMUNE TOLERANCE INDUCTION
     Dates: start: 20120502
  3. BERMUNDA GRASS, STANDARDIZED, 10,000/10ML; ALK-ABELLO [Suspect]
     Indication: IMMUNE TOLERANCE INDUCTION
     Dates: start: 20120502
  4. TIMOTHY, STANDARDIZED 100,000 BAU/10ML; ALK-ABELLO [Suspect]
     Indication: IMMUNE TOLERANCE INDUCTION
     Dates: start: 20120502
  5. MEADOW FESCUE GRASS, STANDARDIZED 100,000BAU/5ML;ALK [Suspect]
     Indication: IMMUNE TOLERANCE INDUCTION
     Dates: start: 20120502
  6. RAGWEED, 1/20 W/V; ALK-ABELLO, INC [Suspect]
     Indication: IMMUNE TOLERANCE INDUCTION
     Dosage: 1 DROP, QD; 059
     Dates: start: 20120502
  7. JOHNSON GRASS, 1/20 W/V; ALK-ABELLO, INC [Suspect]
     Indication: IMMUNE TOLERANCE INDUCTION
     Dates: start: 20120502

REACTIONS (4)
  - RASH GENERALISED [None]
  - RASH PRURITIC [None]
  - URTICARIA [None]
  - OFF LABEL USE [None]
